FAERS Safety Report 7559088-1 (Version None)
Quarter: 2011Q2

REPORT INFORMATION
  Report Type: 
  Country: None (occurrence: None)
  Receive Date: 20110621
  Receipt Date: 20110609
  Transmission Date: 20111010
  Serious: Yes (Hospitalization)
  Sender: FDA-Public Use
  Company Number: FR-JNJFOC-20110606165

PATIENT
  Sex: Female

DRUGS (19)
  1. MEMANTINE HYDROCHLORIDE [Suspect]
     Indication: PRODUCT USED FOR UNKNOWN INDICATION
     Route: 048
     Dates: start: 20110308, end: 20110328
  2. NICARDIPINE HCL [Concomitant]
     Route: 065
  3. ATHYMIL [Suspect]
     Route: 065
     Dates: start: 20110308
  4. VALSARTAN [Concomitant]
     Route: 065
  5. OROCAL D3 [Concomitant]
     Route: 065
  6. ACETAMINOPHEN [Concomitant]
     Route: 065
  7. TIAPRIDAL [Suspect]
     Indication: AGITATION
     Route: 048
     Dates: start: 20110308, end: 20110315
  8. LORAZEPAM [Suspect]
     Dosage: 2 MG ON EVENING AND 2 TABLETS DURING THE DAYS IF NEEDED
     Route: 065
     Dates: start: 20110308
  9. FUROSEMIDE [Concomitant]
     Route: 065
  10. NEURONTIN [Concomitant]
     Route: 065
  11. NEXIUM [Concomitant]
     Route: 065
     Dates: start: 20110301
  12. ATHYMIL [Suspect]
     Indication: PRODUCT USED FOR UNKNOWN INDICATION
     Route: 065
  13. RISPERDAL [Suspect]
     Indication: AGITATION
     Route: 048
     Dates: start: 20110317
  14. RISPERDAL [Suspect]
     Route: 048
     Dates: start: 20110308
  15. ATHYMIL [Suspect]
     Route: 065
     Dates: start: 20110315
  16. NEXIUM [Concomitant]
     Route: 065
     Dates: end: 20110301
  17. IMOVANE [Concomitant]
     Route: 065
  18. MEMANTINE HYDROCHLORIDE [Suspect]
     Route: 048
     Dates: start: 20110328
  19. LORAZEPAM [Suspect]
     Indication: PRODUCT USED FOR UNKNOWN INDICATION
     Dosage: LOWER DOSAGE THAN FROM 08-MAR-2011
     Route: 065

REACTIONS (3)
  - DYSKINESIA [None]
  - AGITATION [None]
  - HALLUCINATION [None]
